FAERS Safety Report 4716388-8 (Version None)
Quarter: 2005Q3

REPORT INFORMATION
  Report Type: 
  Country: None (occurrence: None)
  Receive Date: 20050713
  Receipt Date: 20050704
  Transmission Date: 20060218
  Serious: No
  Sender: FDA-Public Use
  Company Number: 11751

PATIENT
  Age: 14 Year
  Sex: Female

DRUGS (5)
  1. VINCRISTINE [Suspect]
     Dosage: 1.5 MG/M2 IV
     Route: 042
  2. DOXORUBICIN HCL [Suspect]
     Dosage: 30 MG/M2 OTH IV
     Route: 042
  3. IFOSFAMIDE [Suspect]
     Dosage: 3 G/M2 OTH IV
     Route: 042
  4. DACTINOMYCIN [Suspect]
     Dosage: 1.5 MG/M2 OTH IV
     Route: 042
  5. SODIUM MERCAPTOETHANE-SULFONATE [Concomitant]

REACTIONS (9)
  - ASCITES [None]
  - HEPATIC FUNCTION ABNORMAL [None]
  - HEPATIC PAIN [None]
  - HEPATOMEGALY [None]
  - HEPATOTOXICITY [None]
  - ILEUS PARALYTIC [None]
  - MUCOSAL INFLAMMATION [None]
  - VENOOCCLUSIVE LIVER DISEASE [None]
  - WEIGHT INCREASED [None]
